FAERS Safety Report 17854355 (Version 1)
Quarter: 2020Q2

REPORT INFORMATION
  Report Type: Spontaneous
  Country: US (occurrence: US)
  Receive Date: 20200603
  Receipt Date: 20200603
  Transmission Date: 20200714
  Serious: No
  Sender: FDA-Public Use
  Company Number: US-009507513-2005USA004619

PATIENT
  Sex: Female

DRUGS (16)
  1. PREGNYL [Suspect]
     Active Substance: CHORIOGONADOTROPIN ALFA
     Indication: INFERTILITY FEMALE
     Dosage: UNK, ONCE
     Route: 058
     Dates: start: 20191123
  2. ASPIRIN. [Concomitant]
     Active Substance: ASPIRIN
  3. MENOPUR [Concomitant]
     Active Substance: FOLLITROPIN\LUTEINIZING HORMONE
  4. GANIRELIX ACETATE INJECTION [Suspect]
     Active Substance: GANIRELIX ACETATE
     Indication: INFERTILITY FEMALE
     Dosage: 250 MICROGRAM, QD
     Route: 058
     Dates: start: 20191123
  5. VITAMINS (UNSPECIFIED) [Concomitant]
     Active Substance: VITAMINS
  6. FOLLISTIM AQ [Suspect]
     Active Substance: FOLLITROPIN
     Indication: INFERTILITY FEMALE
     Dosage: UNK
     Route: 058
     Dates: start: 20191123
  7. FOLLISTIM AQ [Suspect]
     Active Substance: FOLLITROPIN
  8. FOLLISTIM AQ [Suspect]
     Active Substance: FOLLITROPIN
  9. LEUPROLIDE [Concomitant]
     Active Substance: LEUPROLIDE
  10. PROGESTERONE. [Concomitant]
     Active Substance: PROGESTERONE
  11. FOLLISTIM AQ [Suspect]
     Active Substance: FOLLITROPIN
     Indication: INFERTILITY FEMALE
     Dosage: UNK
     Route: 058
     Dates: start: 20191123
  12. GANIRELIX ACETATE INJECTION [Suspect]
     Active Substance: GANIRELIX ACETATE
     Indication: INFERTILITY FEMALE
     Dosage: 250 MICROGRAM, QD
     Route: 058
     Dates: start: 20191123
  13. FOLLISTIM AQ [Suspect]
     Active Substance: FOLLITROPIN
  14. FOLLISTIM AQ [Suspect]
     Active Substance: FOLLITROPIN
  15. FOLLISTIM AQ [Suspect]
     Active Substance: FOLLITROPIN
     Indication: INFERTILITY FEMALE
     Dosage: UNK
     Route: 058
     Dates: start: 20191123
  16. FOLLISTIM AQ [Suspect]
     Active Substance: FOLLITROPIN
     Indication: INFERTILITY FEMALE
     Dosage: UNK
     Route: 058
     Dates: start: 20191123

REACTIONS (1)
  - Vaginal haemorrhage [Unknown]
